FAERS Safety Report 4430473-X (Version None)
Quarter: 2004Q3

REPORT INFORMATION
  Report Type: 
  Country: None (occurrence: None)
  Receive Date: 20040721
  Receipt Date: 20040503
  Transmission Date: 20050211
  Serious: Yes (Hospitalization)
  Sender: FDA-Public Use
  Company Number: WAES 0405USA00047

PATIENT
  Age: 79 Year
  Sex: Female

DRUGS (6)
  1. VIOXX [Suspect]
     Indication: ARTHRITIS
     Dosage: 25 MG/DAILY/PO
     Route: 048
     Dates: end: 20040401
  2. VIOXX [Suspect]
     Indication: POLYMYOSITIS
     Dosage: 25 MG/DAILY/PO
     Route: 048
     Dates: end: 20040401
  3. DIOVAN [Concomitant]
  4. FOSAMAX [Concomitant]
  5. PLENDIL [Concomitant]
  6. PREDNISONE [Concomitant]

REACTIONS (1)
  - GASTRIC ULCER HAEMORRHAGE [None]
